FAERS Safety Report 7861325-0 (Version None)
Quarter: 2011Q4

REPORT INFORMATION
  Report Type: 
  Country: None (occurrence: None)
  Receive Date: 20111027
  Receipt Date: 20111017
  Transmission Date: 20120403
  Serious: Yes (Other)
  Sender: FDA-Public Use
  Company Number: US-JNJFOC-20111007307

PATIENT
  Sex: Female
  Weight: 51.71 kg

DRUGS (1)
  1. REMICADE [Suspect]
     Indication: RHEUMATOID ARTHRITIS
     Route: 042
     Dates: start: 20110501, end: 20110501

REACTIONS (5)
  - CRYING [None]
  - GASTRIC PERFORATION [None]
  - PALPITATIONS [None]
  - WHEELCHAIR USER [None]
  - DECREASED APPETITE [None]
